FAERS Safety Report 9869976 (Version 1)
Quarter: 2014Q1

REPORT INFORMATION
  Report Type: Spontaneous
  Country: US (occurrence: US)
  Receive Date: 20140205
  Receipt Date: 20140205
  Transmission Date: 20141002
  Serious: No
  Sender: FDA-Public Use
  Company Number: US-GLAXOSMITHKLINE-A1010160A

PATIENT
  Age: 54 Year
  Sex: Female

DRUGS (2)
  1. VALTREX [Suspect]
     Indication: ORAL HERPES
     Dosage: 1TAB PER DAY
     Route: 048
     Dates: start: 2004
  2. NAPROXEN [Concomitant]

REACTIONS (1)
  - Therapeutic response unexpected [Unknown]
